FAERS Safety Report 20394140 (Version 1)
Quarter: 2022Q1

REPORT INFORMATION
  Report Type: Spontaneous
  Country: AT (occurrence: AT)
  Receive Date: 20220129
  Receipt Date: 20220129
  Transmission Date: 20220423
  Serious: Yes (Other)
  Sender: FDA-Public Use
  Company Number: AT-SA-SAC20220126000059

PATIENT

DRUGS (1)
  1. LIBTAYO [Suspect]
     Active Substance: CEMIPLIMAB-RWLC
     Indication: Product used for unknown indication

REACTIONS (7)
  - Renal atrophy [Unknown]
  - Glomerulosclerosis [Unknown]
  - Glomerulonephritis [Unknown]
  - Chronic allograft nephropathy [Unknown]
  - Arteriosclerosis [Unknown]
  - Hypertension [Unknown]
  - Angiopathy [Unknown]
